FAERS Safety Report 15849062 (Version 1)
Quarter: 2019Q1

REPORT INFORMATION
  Report Type: Other
  Country: FR (occurrence: FR)
  Receive Date: 20190121
  Receipt Date: 20190121
  Transmission Date: 20190417
  Serious: Yes (Life-Threatening)
  Sender: FDA-Public Use
  Company Number: FR-EMCURE PHARMS-2018HTG00390

PATIENT
  Age: 58 Year
  Sex: Male
  Weight: 76 kg

DRUGS (5)
  1. UROMITEXAN [Concomitant]
     Active Substance: MESNA
     Dosage: 50 MG/KG, 1X/DAY
     Route: 042
     Dates: start: 20161110, end: 20161112
  2. BICNU [Suspect]
     Active Substance: CARMUSTINE
     Indication: B-CELL LYMPHOMA STAGE IV
     Dosage: 300 MG/M2
     Route: 042
     Dates: start: 20161108, end: 20161108
  3. CYTARABINE (SANDOZ) [Suspect]
     Active Substance: CYTARABINE
     Indication: B-CELL LYMPHOMA STAGE IV
     Dosage: 100 MG/M2, 2X/DAY
     Route: 042
     Dates: start: 20161109, end: 20161112
  4. ETOPOSIDE (TEVA) [Suspect]
     Active Substance: ETOPOSIDE
     Indication: B-CELL LYMPHOMA STAGE IV
     Dosage: 100 MG/M2, 2X/DAY
     Route: 042
     Dates: start: 20161109, end: 20161112
  5. ENDOXAN [Suspect]
     Active Substance: CYCLOPHOSPHAMIDE
     Indication: B-CELL LYMPHOMA STAGE IV
     Dosage: 35 MG/KG, 1X/DAY
     Route: 042
     Dates: start: 20161110, end: 20161112

REACTIONS (1)
  - Sepsis syndrome [Recovering/Resolving]

NARRATIVE: CASE EVENT DATE: 20161118
